FAERS Safety Report 6990817-1 (Version None)
Quarter: 2010Q3

REPORT INFORMATION
  Report Type: 
  Country: None (occurrence: None)
  Receive Date: 20100916
  Receipt Date: 20100817
  Transmission Date: 20110219
  Serious: Yes (Life-Threatening, Hospitalization)
  Sender: FDA-Public Use
  Company Number: JP-PFIZER INC-2010085491

PATIENT
  Sex: Female
  Weight: 44 kg

DRUGS (15)
  1. LYRICA [Suspect]
     Indication: POST HERPETIC NEURALGIA
     Dosage: 75 MG, 1X/DAY
     Route: 048
     Dates: start: 20100625, end: 20100627
  2. DIGOXIN [Suspect]
     Indication: ATRIAL FIBRILLATION
     Dosage: 0.125 G, 1X/DAY
     Route: 048
     Dates: end: 20100627
  3. FLUITRAN [Concomitant]
     Indication: HYPERTENSION
     Dosage: UNK
     Route: 048
  4. MONTELUKAST SODIUM [Concomitant]
     Indication: ASTHMA
     Dosage: 10 UNK, DAILY
     Route: 048
     Dates: end: 20100627
  5. NU LOTAN [Concomitant]
     Indication: HYPERTENSION
     Dosage: UNK; DAILY
     Dates: end: 20100627
  6. ALDACTONE [Concomitant]
     Indication: CARDIAC FAILURE CONGESTIVE
     Dosage: 25 MG, 1X/DAY
     Route: 048
     Dates: end: 20100627
  7. LASIX [Concomitant]
     Indication: CARDIAC FAILURE CONGESTIVE
     Dosage: UNK; DAILY
     Route: 048
     Dates: end: 20100627
  8. LASIX [Concomitant]
     Dosage: 40 UNK, 1X/DAY
  9. ALLOPURINOL [Concomitant]
     Indication: HYPERURICAEMIA
     Dosage: UNK; DAILY
     Route: 048
  10. ANPLAG [Concomitant]
     Indication: ARTERIOSCLEROSIS OBLITERANS
     Dosage: 100 UNK, DAILY
     Route: 048
     Dates: start: 20080829, end: 20100627
  11. OXATOMIDE [Concomitant]
     Indication: RHINITIS ALLERGIC
     Dosage: UNK; 2X/DAY
     Route: 048
     Dates: start: 20080829, end: 20100627
  12. EVISTA [Concomitant]
     Indication: OSTEOPOROSIS
     Dosage: 60 UNK, 1X/DAY
     Route: 048
     Dates: start: 20091015
  13. LIPLE [Concomitant]
     Indication: ARTERIOSCLEROSIS OBLITERANS
     Dosage: 10 UG, UNK
     Route: 042
     Dates: start: 20070215, end: 20100624
  14. LIPLE [Concomitant]
     Indication: POST HERPETIC NEURALGIA
  15. NEUROTROPIN [Concomitant]
     Indication: POST HERPETIC NEURALGIA
     Dosage: 3.6 UG, UNK
     Route: 042
     Dates: start: 20081018, end: 20100624

REACTIONS (3)
  - BRADYCARDIA [None]
  - CARDIAC FAILURE CONGESTIVE [None]
  - TREMOR [None]
